FAERS Safety Report 18947335 (Version 5)
Quarter: 2022Q3

REPORT INFORMATION
  Report Type: Report from Study
  Country: US (occurrence: US)
  Receive Date: 20210226
  Receipt Date: 20220912
  Transmission Date: 20221027
  Serious: Yes (Hospitalization, Other)
  Sender: FDA-Public Use
  Company Number: NVSC2020US330941

PATIENT
  Sex: Female
  Weight: 9.2 kg

DRUGS (11)
  1. ZOLGENSMA [Suspect]
     Active Substance: ONASEMNOGENE ABEPARVOVEC-XIOI
     Indication: Spinal muscular atrophy
     Dosage: 1.1 X E14VG/KG, ONCE/SINGLE
     Route: 042
     Dates: start: 20200923, end: 20200923
  2. PREDNISOLONE [Concomitant]
     Active Substance: PREDNISOLONE
     Indication: Product used for unknown indication
     Dosage: 8.25 MG
     Route: 065
     Dates: start: 20200922, end: 20201028
  3. PREDNISOLONE [Concomitant]
     Active Substance: PREDNISOLONE
     Dosage: 2 MG/KG
     Route: 065
     Dates: start: 20201105, end: 20210105
  4. PREDNISOLONE [Concomitant]
     Active Substance: PREDNISOLONE
     Dosage: 1 MG/KG
     Route: 065
     Dates: start: 20210105, end: 20210203
  5. PREDNISOLONE [Concomitant]
     Active Substance: PREDNISOLONE
     Dosage: 0.5 MG/KG
     Route: 065
     Dates: start: 20210203, end: 20210310
  6. PREDNISOLONE [Concomitant]
     Active Substance: PREDNISOLONE
     Dosage: 2.25 MG
     Route: 065
     Dates: start: 20210310, end: 20210407
  7. NUSINERSEN [Concomitant]
     Active Substance: NUSINERSEN
     Indication: Product used for unknown indication
     Dosage: UNK (DOSE 1)
     Route: 065
     Dates: start: 20190917
  8. NUSINERSEN [Concomitant]
     Active Substance: NUSINERSEN
     Dosage: UNK (DOSE 2)
     Route: 065
     Dates: start: 20191003
  9. NUSINERSEN [Concomitant]
     Active Substance: NUSINERSEN
     Dosage: UNK (DOSE 3)
     Route: 065
     Dates: start: 20191015
  10. NUSINERSEN [Concomitant]
     Active Substance: NUSINERSEN
     Dosage: UNK (DOSE 4)
     Route: 065
     Dates: start: 20191113
  11. NUSINERSEN [Concomitant]
     Active Substance: NUSINERSEN
     Dosage: UNK (MAINTENANCE)
     Route: 065
     Dates: start: 20200403

REACTIONS (12)
  - Acute respiratory failure [Recovered/Resolved]
  - Hypoxia [Recovered/Resolved]
  - Tracheitis [Recovered/Resolved]
  - Thrombocytopenia [Recovered/Resolved]
  - Alanine aminotransferase increased [Recovered/Resolved]
  - Upper respiratory tract infection bacterial [Recovered/Resolved]
  - Scoliosis [Not Recovered/Not Resolved]
  - Aspartate aminotransferase increased [Recovered/Resolved]
  - Pyrexia [Recovered/Resolved]
  - Fungal skin infection [Recovered/Resolved]
  - Adenovirus test positive [Recovered/Resolved]
  - Pyrexia [Recovered/Resolved]

NARRATIVE: CASE EVENT DATE: 20200930
